FAERS Safety Report 13711044 (Version 1)
Quarter: 2017Q3

REPORT INFORMATION
  Report Type: Spontaneous
  Country: US (occurrence: US)
  Receive Date: 20170703
  Receipt Date: 20170703
  Transmission Date: 20171127
  Serious: No
  Sender: FDA-Public Use
  Company Number: US-ASTRAZENECA-2017SE65691

PATIENT
  Sex: Male
  Weight: 77.1 kg

DRUGS (1)
  1. BYDUREON [Suspect]
     Active Substance: EXENATIDE
     Indication: BLOOD GLUCOSE INCREASED
     Route: 065
     Dates: start: 2015

REACTIONS (5)
  - Arthropod sting [Unknown]
  - Device malfunction [Unknown]
  - Drug dose omission [Unknown]
  - Underdose [Unknown]
  - Intentional product misuse [Unknown]
